FAERS Safety Report 11146151 (Version 1)
Quarter: 2015Q2

REPORT INFORMATION
  Report Type: Spontaneous
  Country: US (occurrence: None)
  Receive Date: 20150527
  Receipt Date: 20150527
  Transmission Date: 20150821
  Serious: Yes (Life-Threatening, Hospitalization, Disabling)
  Sender: FDA-Public Use
  Company Number: None

PATIENT
  Age: 26 Year
  Sex: Female
  Weight: 92.53 kg

DRUGS (7)
  1. ADDERALL [Concomitant]
     Active Substance: AMPHETAMINE ASPARTATE\AMPHETAMINE SULFATE\DEXTROAMPHETAMINE SACCHARATE\DEXTROAMPHETAMINE SULFATE
  2. TRAMADOL [Concomitant]
     Active Substance: TRAMADOL
  3. CLARITHROMYCIN. [Concomitant]
     Active Substance: CLARITHROMYCIN
  4. REGLAN [Suspect]
     Active Substance: METOCLOPRAMIDE HYDROCHLORIDE
     Indication: HEADACHE
     Dosage: 1 BOLLUS INJECTION ONCE DAILY INTO A VEIN
     Route: 042
     Dates: start: 20150520, end: 20150520
  5. MACROBID [Concomitant]
     Active Substance: NITROFURANTOIN\NITROFURANTOIN MONOHYDRATE
  6. CLONAZEPAM. [Concomitant]
     Active Substance: CLONAZEPAM
  7. METOPROLOL [Concomitant]
     Active Substance: METOPROLOL

REACTIONS (16)
  - Dystonia [None]
  - Paraesthesia [None]
  - Feeling hot [None]
  - Dizziness [None]
  - Blood pressure decreased [None]
  - Speech disorder [None]
  - Flushing [None]
  - Dyskinesia [None]
  - Vibratory sense increased [None]
  - Hypoaesthesia [None]
  - Dysphemia [None]
  - Aphasia [None]
  - Mobility decreased [None]
  - Heart rate increased [None]
  - Gait disturbance [None]
  - Incorrect drug administration rate [None]

NARRATIVE: CASE EVENT DATE: 20150520
